FAERS Safety Report 8334122-X (Version None)
Quarter: 2012Q2

REPORT INFORMATION
  Report Type: 
  Country: None (occurrence: None)
  Receive Date: 20120503
  Receipt Date: 20120426
  Transmission Date: 20120825
  Serious: Yes (Other)
  Sender: FDA-Public Use
  Company Number: US-PFIZER INC-2012105024

PATIENT

DRUGS (2)
  1. PRISTIQ [Suspect]
     Dosage: UNK
  2. COUMADIN [Suspect]
     Dosage: UNK

REACTIONS (2)
  - HAEMORRHAGE [None]
  - PLATELET DISORDER [None]
